FAERS Safety Report 8026070-X (Version None)
Quarter: 2012Q1

REPORT INFORMATION
  Report Type: 
  Country: None (occurrence: None)
  Receive Date: 20120105
  Receipt Date: 20110610
  Transmission Date: 20120608
  Serious: No
  Sender: FDA-Public Use
  Company Number: US-ABBOTT-11P-163-0732199-00

PATIENT
  Sex: Female
  Weight: 83.99 kg

DRUGS (9)
  1. FORTAMET [Concomitant]
     Indication: PRODUCT USED FOR UNKNOWN INDICATION
  2. ASPIRIN [Concomitant]
     Indication: PRODUCT USED FOR UNKNOWN INDICATION
     Route: 048
  3. SYNTHROID [Suspect]
     Dosage: IN MORNING
     Route: 048
     Dates: start: 20110607
  4. SYNTHROID [Suspect]
     Dosage: LOWER DOSES
     Route: 048
  5. GABAPENTIN [Concomitant]
     Indication: PRODUCT USED FOR UNKNOWN INDICATION
  6. LIPITOR [Concomitant]
     Indication: BLOOD CHOLESTEROL
  7. MULTIVITAMIN WITHOUT IRON [Concomitant]
     Indication: VITAMIN SUPPLEMENTATION
  8. SYNTHROID [Suspect]
     Indication: HYPOTHYROIDISM
     Dosage: IN MORNING
     Dates: end: 20110607
  9. TRICOR [Concomitant]
     Indication: BLOOD CHOLESTEROL

REACTIONS (2)
  - DISTURBANCE IN ATTENTION [None]
  - BLOOD THYROID STIMULATING HORMONE INCREASED [None]
